FAERS Safety Report 4914013-4 (Version None)
Quarter: 2006Q1

REPORT INFORMATION
  Report Type: 
  Country: None (occurrence: None)
  Receive Date: 20060216
  Receipt Date: 20060127
  Transmission Date: 20060701
  Serious: Yes (Other)
  Sender: FDA-Public Use
  Company Number: JP-ROCHE-435054

PATIENT
  Age: 66 Year
  Sex: Female

DRUGS (5)
  1. TAMIFLU [Suspect]
     Indication: INFLUENZA
     Dosage: DOSE FORM REPORTED AS ORAL FORMULATION
     Route: 048
     Dates: start: 20060121
  2. ACETAMINOPHEN [Concomitant]
  3. BLOPRESS [Concomitant]
     Dates: end: 20060120
  4. LIVALO [Concomitant]
     Dates: end: 20060120
  5. CONIEL [Concomitant]
     Dates: end: 20060120

REACTIONS (2)
  - MELAENA [None]
  - VOMITING [None]
